FAERS Safety Report 15037311 (Version 1)
Quarter: 2018Q2

REPORT INFORMATION
  Report Type: Other
  Country: BR (occurrence: BR)
  Receive Date: 20180620
  Receipt Date: 20180620
  Transmission Date: 20180711
  Serious: Yes (Life-Threatening, Hospitalization)
  Sender: FDA-Public Use
  Company Number: BR-NOSTRUM LABORATORIES, INC.-2049714

PATIENT
  Age: 12 Year
  Sex: Female
  Weight: 34 kg

DRUGS (1)
  1. DAPSONE. [Suspect]
     Active Substance: DAPSONE
     Indication: LEPROSY
     Route: 048

REACTIONS (7)
  - Acute hepatic failure [Recovered/Resolved]
  - Enterococcal bacteraemia [Recovered/Resolved]
  - Pneumonia [Recovered/Resolved]
  - Dermatitis exfoliative generalised [Recovered/Resolved]
  - Acute kidney injury [Recovered/Resolved]
  - Jaundice [Recovered/Resolved]
  - Urinary tract infection [Recovered/Resolved]
